FAERS Safety Report 14510677 (Version 1)
Quarter: 2018Q1

REPORT INFORMATION
  Report Type: Spontaneous
  Country: US (occurrence: US)
  Receive Date: 20180208
  Receipt Date: 20180208
  Transmission Date: 20180509
  Serious: Yes (Life-Threatening, Hospitalization)
  Sender: FDA-Public Use
  Company Number: None

PATIENT
  Age: 63 Year
  Sex: Male
  Weight: 95.1 kg

DRUGS (1)
  1. METHADONE [Suspect]
     Active Substance: METHADONE HYDROCHLORIDE
     Indication: PAIN
     Dates: start: 20150424, end: 20151126

REACTIONS (4)
  - Arthralgia [None]
  - Pulse absent [None]
  - Torsade de pointes [None]
  - Ventricular tachycardia [None]

NARRATIVE: CASE EVENT DATE: 20151129
